FAERS Safety Report 7305893-6 (Version None)
Quarter: 2011Q1

REPORT INFORMATION
  Report Type: 
  Country: None (occurrence: None)
  Receive Date: 20110222
  Receipt Date: 20110214
  Transmission Date: 20110831
  Serious: Yes (Hospitalization, Other)
  Sender: FDA-Public Use
  Company Number: US-ALEXION-A201100107

PATIENT
  Sex: Female

DRUGS (9)
  1. METOPROLOL [Concomitant]
     Dosage: UNK
  2. ADVAIR [Concomitant]
     Dosage: UNK
  3. EXJADE [Concomitant]
     Dosage: UNK
  4. SOLIRIS [Suspect]
     Indication: PAROXYSMAL NOCTURNAL HAEMOGLOBINURIA
     Dosage: 600 MG, QW
     Route: 042
     Dates: start: 20070710, end: 20070731
  5. CELEXA [Concomitant]
     Dosage: UNK
  6. COUMADIN [Concomitant]
     Dosage: UNK
  7. SOLIRIS [Suspect]
     Dosage: 900 MG, Q2W
     Route: 042
     Dates: start: 20070807
  8. LASIX [Concomitant]
     Dosage: UNK
  9. DILAUDID [Concomitant]
     Dosage: UNK

REACTIONS (13)
  - INFECTION [None]
  - DRUG HYPERSENSITIVITY [None]
  - BACK PAIN [None]
  - PACKED RED BLOOD CELL TRANSFUSION [None]
  - ERYTHEMA [None]
  - BLOOD CREATININE INCREASED [None]
  - HEADACHE [None]
  - PAIN [None]
  - DEVICE RELATED INFECTION [None]
  - OEDEMA PERIPHERAL [None]
  - RENAL DISORDER [None]
  - PLATELET TRANSFUSION [None]
  - ABDOMINAL PAIN UPPER [None]
